FAERS Safety Report 6482796-0 (Version None)
Quarter: 2009Q4

REPORT INFORMATION
  Report Type: 
  Country: None (occurrence: None)
  Receive Date: 20091204
  Receipt Date: 20091123
  Transmission Date: 20100525
  Serious: Yes (Other)
  Sender: FDA-Public Use
  Company Number: 1000010396

PATIENT
  Age: 84 Year
  Sex: Male

DRUGS (3)
  1. MEMANTINE HCL [Suspect]
     Dosage: ORAL
     Route: 048
     Dates: start: 20090911
  2. RISPERDAL [Concomitant]
  3. ZYPREXA [Concomitant]

REACTIONS (3)
  - HYPOKINESIA [None]
  - MUSCLE RIGIDITY [None]
  - SALIVARY HYPERSECRETION [None]
